FAERS Safety Report 7005575-4 (Version None)
Quarter: 2010Q3

REPORT INFORMATION
  Report Type: 
  Country: None (occurrence: None)
  Receive Date: 20100921
  Receipt Date: 20100910
  Transmission Date: 20110219
  Serious: Yes (Hospitalization)
  Sender: FDA-Public Use
  Company Number: A0839234A

PATIENT
  Age: 54 Year
  Sex: Female
  Weight: 127.3 kg

DRUGS (6)
  1. AVANDIA [Suspect]
     Indication: DIABETES MELLITUS
     Dosage: 8MG PER DAY
     Route: 048
     Dates: start: 20030101, end: 20070501
  2. LISINOPRIL [Concomitant]
  3. METFORMIN [Concomitant]
  4. CYMBALTA [Concomitant]
  5. ASPIRIN [Concomitant]
  6. AMARYL [Concomitant]

REACTIONS (1)
  - MYOCARDIAL INFARCTION [None]
